FAERS Safety Report 6240887-3 (Version None)
Quarter: 2009Q2

REPORT INFORMATION
  Report Type: 
  Country: None (occurrence: None)
  Receive Date: 20090623
  Receipt Date: 20090612
  Transmission Date: 20091009
  Serious: Yes (Hospitalization)
  Sender: FDA-Public Use
  Company Number: DE-PFIZER INC-2008083699

PATIENT
  Age: 72 Year

DRUGS (8)
  1. BLINDED *PLACEBO [Suspect]
     Indication: NON-SMALL CELL LUNG CANCER
     Dosage: 37.5 MG, 1X/DAY
     Route: 048
     Dates: start: 20080912, end: 20081007
  2. BLINDED SUNITINIB MALATE [Suspect]
     Indication: NON-SMALL CELL LUNG CANCER
     Dosage: 37.5 MG, 1X/DAY
     Route: 048
     Dates: start: 20080912, end: 20081007
  3. *ERLOTINIB [Suspect]
     Indication: NON-SMALL CELL LUNG CANCER
     Route: 048
     Dates: start: 20080912
  4. CAPVAL [Concomitant]
     Dosage: UNK
     Route: 048
     Dates: start: 20080904
  5. OPIPRAMOL [Concomitant]
     Dosage: UNK
     Route: 048
     Dates: start: 20080115
  6. CALCIUM CARBONATE/COLECALCIFEROL [Concomitant]
     Dosage: UNK
     Route: 048
     Dates: start: 20080127
  7. ACETYLCYSTEINE [Concomitant]
     Dosage: UNK
     Route: 048
     Dates: start: 20080904
  8. OXYGEN [Concomitant]
     Dosage: UNK
     Route: 048
     Dates: start: 20080929

REACTIONS (1)
  - PERFORMANCE STATUS DECREASED [None]
